FAERS Safety Report 25754783 (Version 1)
Quarter: 2025Q3

REPORT INFORMATION
  Report Type: Spontaneous
  Country: US (occurrence: US)
  Receive Date: 20250903
  Receipt Date: 20250903
  Transmission Date: 20251020
  Serious: Yes (Death, Hospitalization, Other)
  Sender: GLAND PHARMA LTD
  Company Number: US-GLANDPHARMA-US-2025GLNLIT01710

PATIENT
  Age: 78 Year
  Sex: Male

DRUGS (8)
  1. ENOXAPARIN SODIUM [Suspect]
     Active Substance: ENOXAPARIN SODIUM
     Indication: COVID-19
     Route: 065
  2. APIXABAN [Suspect]
     Active Substance: APIXABAN
     Indication: Thrombosis prophylaxis
     Route: 065
  3. TACROLIMUS [Concomitant]
     Active Substance: TACROLIMUS
     Route: 065
  4. MYCOPHENOLATE MOFETIL [Concomitant]
     Active Substance: MYCOPHENOLATE MOFETIL
     Route: 065
  5. PREDNISONE [Concomitant]
     Active Substance: PREDNISONE
     Route: 065
  6. REMDESIVIR [Concomitant]
     Active Substance: REMDESIVIR
     Indication: COVID-19
     Route: 065
  7. CASIRIVIMAB [Concomitant]
     Active Substance: CASIRIVIMAB
     Indication: COVID-19
     Route: 065
  8. IMDEVIMAB [Concomitant]
     Active Substance: IMDEVIMAB
     Indication: COVID-19
     Route: 065

REACTIONS (4)
  - Hypovolaemic shock [Fatal]
  - Abdominal wall haematoma [Fatal]
  - Shock haemorrhagic [Fatal]
  - Product use in unapproved indication [Unknown]
